FAERS Safety Report 21230460 (Version 3)
Quarter: 2023Q1

REPORT INFORMATION
  Report Type: Spontaneous
  Country: US (occurrence: US)
  Receive Date: 20220818
  Receipt Date: 20230216
  Transmission Date: 20230417
  Serious: Yes (Life-Threatening, Hospitalization)
  Sender: FDA-Public Use
  Company Number: US-TEVA-2022-US-2064511

PATIENT
  Age: 17 Year
  Sex: Female
  Weight: 103 kg

DRUGS (12)
  1. AMLODIPINE [Suspect]
     Active Substance: AMLODIPINE BESYLATE
     Indication: Product used for unknown indication
     Dosage: INGESTED 500- 550 MG OF AMLODIPINE
     Route: 048
  2. AMOXICILLIN [Suspect]
     Active Substance: AMOXICILLIN
     Indication: Product used for unknown indication
     Route: 048
  3. IBUPROFEN [Suspect]
     Active Substance: IBUPROFEN
     Indication: Product used for unknown indication
     Route: 048
  4. EPINEPHRINE [Suspect]
     Active Substance: EPINEPHRINE
     Indication: Hypotension
     Route: 065
  5. NOREPINEPHRINE [Suspect]
     Active Substance: NOREPINEPHRINE
     Indication: Hypotension
     Route: 065
  6. ACETAMINOPHEN [Suspect]
     Active Substance: ACETAMINOPHEN
     Indication: Product used for unknown indication
     Route: 048
  7. CALCIUM [Suspect]
     Active Substance: CALCIUM
     Indication: Hypotension
     Dosage: INFUSION
     Route: 050
  8. INSULIN NOS [Suspect]
     Active Substance: INSULIN NOS
     Indication: Hypotension
     Dosage: 2.4 IU/KG DAILY; INFUSION, 0.1 IU/KG/HOUR
     Route: 050
  9. GLUCAGON [Suspect]
     Active Substance: GLUCAGON
     Indication: Hypotension
     Dosage: INFUSION
     Route: 050
  10. SODIUM BICARBONATE [Suspect]
     Active Substance: SODIUM BICARBONATE
     Indication: Hypotension
     Dosage: INFUSION
     Route: 050
  11. VASOPRESSIN [Suspect]
     Active Substance: VASOPRESSIN
     Indication: Hypotension
     Route: 065
  12. METHYLENE BLUE [Suspect]
     Active Substance: METHYLENE BLUE
     Indication: Hypotension
     Route: 065

REACTIONS (7)
  - Hypotension [Recovering/Resolving]
  - Seizure [Recovering/Resolving]
  - Acute kidney injury [Recovering/Resolving]
  - Hypervolaemia [Recovering/Resolving]
  - Toxicity to various agents [Recovering/Resolving]
  - Intentional overdose [Unknown]
  - Drug ineffective [Unknown]
